FAERS Safety Report 25435287 (Version 4)
Quarter: 2025Q3

REPORT INFORMATION
  Report Type: Report from Study
  Country: US (occurrence: US)
  Receive Date: 20250613
  Receipt Date: 20250716
  Transmission Date: 20251021
  Serious: Yes (Hospitalization)
  Sender: MALLINCKRODT
  Company Number: US-MALLINCKRODT-MNK202501846

PATIENT
  Age: 62 Year
  Sex: Female

DRUGS (10)
  1. CORTICOTROPIN [Suspect]
     Active Substance: CORTICOTROPIN
     Indication: Ocular pemphigoid
     Dates: start: 20250321, end: 2025
  2. CORTICOTROPIN [Suspect]
     Active Substance: CORTICOTROPIN
     Indication: Ocular pemphigoid
     Route: 058
     Dates: start: 2025, end: 2025
  3. CORTICOTROPIN [Suspect]
     Active Substance: CORTICOTROPIN
     Indication: Polymyositis
     Route: 058
     Dates: start: 2025
  4. CORTICOTROPIN [Suspect]
     Active Substance: CORTICOTROPIN
     Indication: Myopathy
  5. CORTICOTROPIN [Suspect]
     Active Substance: CORTICOTROPIN
     Indication: Polymyositis
     Route: 058
     Dates: start: 2025, end: 2025
  6. CORTICOTROPIN [Suspect]
     Active Substance: CORTICOTROPIN
     Indication: Myopathy
  7. METHOTREXATE [Concomitant]
     Active Substance: METHOTREXATE
  8. METHOTREXATE [Concomitant]
     Active Substance: METHOTREXATE
  9. PREDNISONE [Concomitant]
     Active Substance: PREDNISONE
  10. PREDNISONE [Concomitant]
     Active Substance: PREDNISONE

REACTIONS (10)
  - Polymyositis [Unknown]
  - Condition aggravated [Unknown]
  - Cardiac arrest [Recovering/Resolving]
  - Heart rate increased [Unknown]
  - Influenza like illness [Unknown]
  - Vision blurred [Recovered/Resolved]
  - Blood glucose increased [Unknown]
  - Asthenia [Not Recovered/Not Resolved]
  - Fatigue [Recovering/Resolving]
  - Drug ineffective [Unknown]

NARRATIVE: CASE EVENT DATE: 20250101
